FAERS Safety Report 5579900-5 (Version None)
Quarter: 2008Q1

REPORT INFORMATION
  Report Type: 
  Country: None (occurrence: None)
  Receive Date: 20080103
  Receipt Date: 20071227
  Transmission Date: 20080703
  Serious: Yes (Other)
  Sender: FDA-Public Use
  Company Number: US-JNJFOC-20071101604

PATIENT
  Sex: Male
  Weight: 88.45 kg

DRUGS (9)
  1. REMICADE [Suspect]
     Route: 042
  2. REMICADE [Suspect]
     Indication: PSORIATIC ARTHROPATHY
     Route: 042
  3. PREDNISONE [Suspect]
     Indication: DRUG USE FOR UNKNOWN INDICATION
  4. PROCARDIA XL [Concomitant]
  5. ULTRACET [Concomitant]
  6. TESTIM GEL [Concomitant]
  7. ZINC [Concomitant]
  8. VITAMIN CAP [Concomitant]
  9. FLU SHOT [Concomitant]

REACTIONS (4)
  - ABDOMINAL PAIN UPPER [None]
  - BLOOD GLUCOSE FLUCTUATION [None]
  - DEHYDRATION [None]
  - FATIGUE [None]
